FAERS Safety Report 6624493-4 (Version None)
Quarter: 2010Q1

REPORT INFORMATION
  Report Type: 
  Country: None (occurrence: None)
  Receive Date: 20100310
  Receipt Date: 20091022
  Transmission Date: 20100710
  Serious: No
  Sender: FDA-Public Use
  Company Number: US-BIOGENIDEC-2009BI033961

PATIENT
  Age: 52 Year
  Sex: Male

DRUGS (4)
  1. AVONEX [Suspect]
     Indication: MULTIPLE SCLEROSIS
     Route: 030
     Dates: start: 20090601, end: 20090601
  2. AVONEX [Suspect]
     Route: 030
     Dates: start: 20090601, end: 20090601
  3. AVONEX [Suspect]
     Route: 030
     Dates: start: 20090701, end: 20090701
  4. AVONEX [Suspect]
     Route: 030
     Dates: start: 20090701

REACTIONS (4)
  - BACK PAIN [None]
  - HYPOAESTHESIA [None]
  - INFLUENZA LIKE ILLNESS [None]
  - MUSCULAR WEAKNESS [None]
